FAERS Safety Report 7783561-4 (Version None)
Quarter: 2011Q3

REPORT INFORMATION
  Report Type: 
  Country: None (occurrence: None)
  Receive Date: 20110928
  Receipt Date: 20110812
  Transmission Date: 20111222
  Serious: No
  Sender: FDA-Public Use
  Company Number: US-MYLANLABS-2011S1016731

PATIENT
  Sex: Female

DRUGS (3)
  1. LETROZOLE [Suspect]
     Indication: BREAST CANCER
     Route: 048
     Dates: start: 20110701, end: 20110701
  2. ASPIRIN [Concomitant]
  3. CALCIUM CARBONATE [Concomitant]

REACTIONS (4)
  - DEPRESSION [None]
  - MOOD ALTERED [None]
  - ARTHRALGIA [None]
  - DEPRESSED MOOD [None]
